FAERS Safety Report 12436281 (Version 1)
Quarter: 2016Q2

REPORT INFORMATION
  Report Type: Spontaneous
  Country: US (occurrence: US)
  Receive Date: 20160605
  Receipt Date: 20160605
  Transmission Date: 20160815
  Serious: No
  Sender: FDA-Public Use
  Company Number: US-ASTRAZENECA-2016SE45772

PATIENT
  Sex: Female

DRUGS (2)
  1. SYMLIN [Suspect]
     Active Substance: PRAMLINTIDE ACETATE
     Dosage: 1 MG/1.5 ML, 60 MG, ONCE OR TWICE A DAY
     Route: 058
  2. SYMLIN [Suspect]
     Active Substance: PRAMLINTIDE ACETATE
     Dosage: 1 MG/1.5 ML, 60 MG, THREE TIMES A DAY
     Route: 058

REACTIONS (5)
  - Underdose [Unknown]
  - Intentional product misuse [Unknown]
  - Abdominal distension [Unknown]
  - Nausea [Unknown]
  - Product quality issue [Unknown]
